FAERS Safety Report 18123036 (Version 1)
Quarter: 2020Q3

REPORT INFORMATION
  Report Type: Spontaneous
  Country: US (occurrence: US)
  Receive Date: 20200806
  Receipt Date: 20200806
  Transmission Date: 20201103
  Serious: Yes (Disabling)
  Sender: FDA-Public Use
  Company Number: None

PATIENT
  Age: 83 Year
  Sex: Female
  Weight: 53.07 kg

DRUGS (1)
  1. PRAVASTATIN. [Suspect]
     Active Substance: PRAVASTATIN
     Indication: BLOOD CHOLESTEROL ABNORMAL
     Dosage: ?          QUANTITY:10 MG MILLIGRAM(S);?
     Route: 048
     Dates: start: 20200527, end: 20200605

REACTIONS (16)
  - Skin exfoliation [None]
  - Hypersensitivity [None]
  - Tendon disorder [None]
  - Peripheral swelling [None]
  - Gait disturbance [None]
  - Dizziness [None]
  - Nightmare [None]
  - Therapy cessation [None]
  - Arthralgia [None]
  - Lip swelling [None]
  - Vision blurred [None]
  - Ocular hyperaemia [None]
  - Skin ulcer [None]
  - Fatigue [None]
  - Appendicitis [None]
  - Fungal infection [None]

NARRATIVE: CASE EVENT DATE: 20200604
